FAERS Safety Report 8188583-X (Version None)
Quarter: 2012Q1

REPORT INFORMATION
  Report Type: 
  Country: None (occurrence: None)
  Receive Date: 20120306
  Receipt Date: 20120224
  Transmission Date: 20120608
  Serious: Yes (Hospitalization, Other)
  Sender: FDA-Public Use
  Company Number: US-BAXTER-2012BH005363

PATIENT
  Age: 64 Year
  Sex: Female

DRUGS (4)
  1. HEPARIN [Suspect]
     Route: 033
     Dates: start: 20120213
  2. EXTRANEAL [Suspect]
     Indication: PERITONEAL DIALYSIS
     Route: 033
     Dates: end: 20120201
  3. HEPARIN [Suspect]
     Indication: PRODUCT USED FOR UNKNOWN INDICATION
     Route: 033
  4. DIANEAL [Suspect]
     Indication: PERITONEAL DIALYSIS
     Route: 033
     Dates: end: 20120201

REACTIONS (3)
  - PYREXIA [None]
  - PERITONITIS BACTERIAL [None]
  - FUNGAL PERITONITIS [None]
